FAERS Safety Report 7516466-4 (Version None)
Quarter: 2011Q2

REPORT INFORMATION
  Report Type: 
  Country: None (occurrence: None)
  Receive Date: 20110601
  Receipt Date: 20110517
  Transmission Date: 20111010
  Serious: Yes (Hospitalization)
  Sender: FDA-Public Use
  Company Number: A0789830A

PATIENT
  Age: 53 Year
  Sex: Male

DRUGS (3)
  1. METFORMIN HCL [Concomitant]
  2. AVANDIA [Suspect]
     Dosage: 4MG TWICE PER DAY
     Route: 048
     Dates: start: 20051101, end: 20070601
  3. VYTORIN [Concomitant]

REACTIONS (4)
  - CORONARY ARTERY DISEASE [None]
  - AMNESIA [None]
  - CARDIAC FAILURE CONGESTIVE [None]
  - MYOCARDIAL INFARCTION [None]
